FAERS Safety Report 8769434 (Version 1)
Quarter: 2012Q4

REPORT INFORMATION
  Report Type: 
  Country: FR (occurrence: FR)
  Receive Date: 20120905
  Receipt Date: 20120905
  Transmission Date: 20130627
  Serious: Yes (Hospitalization)
  Sender: FDA-Public Use
  Company Number: FR-ASTRAZENECA-2012SE65217

PATIENT
  Age: 777 Month
  Sex: Male

DRUGS (6)
  1. INEXIUM [Suspect]
     Route: 048
     Dates: start: 201203, end: 201207
  2. PREVISCAN [Concomitant]
  3. BICARBONATE SODIC [Concomitant]
  4. CALCIDIA [Concomitant]
  5. UVEDOSE [Concomitant]
  6. PARACETAMOL [Concomitant]

REACTIONS (2)
  - Nephropathy [Recovering/Resolving]
  - Eosinophilia [Not Recovered/Not Resolved]
